FAERS Safety Report 10946974 (Version 1)
Quarter: 2015Q1

REPORT INFORMATION
  Report Type: Spontaneous
  Country: US (occurrence: US)
  Receive Date: 20150323
  Receipt Date: 20150323
  Transmission Date: 20150721
  Serious: Yes (Other)
  Sender: FDA-Public Use
  Company Number: US-PFIZER INC-2015100966

PATIENT
  Age: 50 Year
  Sex: Female
  Weight: 74 kg

DRUGS (17)
  1. BACLOFEN. [Concomitant]
     Active Substance: BACLOFEN
  2. IRON [Concomitant]
     Active Substance: IRON
  3. MORPHINE [Concomitant]
     Active Substance: MORPHINE
  4. VITAMIN B12 [Concomitant]
     Active Substance: CYANOCOBALAMIN
  5. DILAUDID [Concomitant]
     Active Substance: HYDROMORPHONE HYDROCHLORIDE
  6. SULFASALAZINE. [Concomitant]
     Active Substance: SULFASALAZINE
  7. EFFEXOR [Concomitant]
     Active Substance: VENLAFAXINE HYDROCHLORIDE
  8. TRAZODONE [Concomitant]
     Active Substance: TRAZODONE HYDROCHLORIDE
  9. HYDROCORTISONE. [Concomitant]
     Active Substance: HYDROCORTISONE
  10. CELEBREX [Suspect]
     Active Substance: CELECOXIB
     Dosage: 500 MG, 2X/DAY
     Route: 048
     Dates: start: 2013
  11. VITAMIN D3 [Concomitant]
     Active Substance: CHOLECALCIFEROL
  12. DULCOLAX [Concomitant]
     Active Substance: BISACODYL OR DOCUSATE SODIUM
  13. ZOLOFT [Concomitant]
     Active Substance: SERTRALINE HYDROCHLORIDE
  14. BUDESONIDE. [Concomitant]
     Active Substance: BUDESONIDE
  15. VITAMIN C [Concomitant]
     Active Substance: ASCORBIC ACID
  16. WARFARIN [Concomitant]
     Active Substance: WARFARIN
  17. BUSPAR [Concomitant]
     Active Substance: BUSPIRONE HYDROCHLORIDE
     Indication: DEPRESSION

REACTIONS (3)
  - Coeliac disease [Not Recovered/Not Resolved]
  - Thrombosis [Not Recovered/Not Resolved]
  - Condition aggravated [Not Recovered/Not Resolved]
